FAERS Safety Report 7060866-6 (Version None)
Quarter: 2010Q4

REPORT INFORMATION
  Report Type: 
  Country: None (occurrence: None)
  Receive Date: 20101025
  Receipt Date: 20101018
  Transmission Date: 20110411
  Serious: Yes (Other)
  Sender: FDA-Public Use
  Company Number: US-GILEAD-2010-0029065

PATIENT
  Sex: Male

DRUGS (4)
  1. ATRIPLA [Suspect]
     Indication: HIV INFECTION
     Dates: start: 20100426
  2. LISINOPRIL [Concomitant]
     Indication: HYPERTENSION
     Dates: start: 20090601
  3. NORVASC [Concomitant]
     Indication: HYPERTENSION
     Dates: start: 20090601
  4. DICLOFENAC SODIUM [Concomitant]

REACTIONS (1)
  - RHABDOMYOLYSIS [None]
